FAERS Safety Report 10120897 (Version 2)
Quarter: 2014Q2

REPORT INFORMATION
  Report Type: Spontaneous
  Country: US (occurrence: US)
  Receive Date: 20140425
  Receipt Date: 20140616
  Transmission Date: 20141212
  Serious: Yes (Hospitalization)
  Sender: FDA-Public Use
  Company Number: US-BRISTOL-MYERS SQUIBB COMPANY-20639779

PATIENT
  Age: 16 Year
  Sex: Male
  Weight: 103.4 kg

DRUGS (4)
  1. ABILIFY TABS [Suspect]
     Indication: MOOD SWINGS
     Dosage: 1.5-2 YEARS AGO?10MG REDUCED TO 7.5 MG TO 5 MG?DOSE INCREASED : 5MG-BID
     Route: 048
     Dates: start: 20110915
  2. ABILIFY TABS [Suspect]
     Indication: PSYCHOTIC DISORDER
     Dosage: 1.5-2 YEARS AGO?10MG REDUCED TO 7.5 MG TO 5 MG?DOSE INCREASED : 5MG-BID
     Route: 048
     Dates: start: 20110915
  3. VYVANSE [Concomitant]
     Indication: ATTENTION DEFICIT/HYPERACTIVITY DISORDER
     Dates: start: 20120427
  4. LAMICTAL [Concomitant]
     Indication: MOOD SWINGS
     Dates: start: 201303

REACTIONS (4)
  - Abnormal behaviour [Unknown]
  - Affective disorder [Recovered/Resolved]
  - Wrong technique in drug usage process [Unknown]
  - Off label use [Unknown]
